FAERS Safety Report 5012139-0 (Version None)
Quarter: 2006Q2

REPORT INFORMATION
  Report Type: 
  Country: None (occurrence: None)
  Receive Date: 20060525
  Receipt Date: 20060525
  Transmission Date: 20061013
  Serious: Yes (Hospitalization)
  Sender: FDA-Public Use
  Company Number: None

PATIENT
  Age: 45 Year
  Sex: Male
  Weight: 105 kg

DRUGS (1)
  1. METHADONE [Suspect]
     Indication: BACK PAIN
     Dosage: UNKNOWN-PRESUMED OVERDOSE

REACTIONS (1)
  - DEPRESSED LEVEL OF CONSCIOUSNESS [None]
